FAERS Safety Report 19097385 (Version 1)
Quarter: 2021Q2

REPORT INFORMATION
  Report Type: Spontaneous
  Country: US (occurrence: US)
  Receive Date: 20210406
  Receipt Date: 20210406
  Transmission Date: 20210717
  Serious: Yes (Other)
  Sender: FDA-Public Use
  Company Number: None

PATIENT
  Age: 62 Year
  Sex: Female
  Weight: 81 kg

DRUGS (3)
  1. MELATONIN [Concomitant]
     Active Substance: MELATONIN
  2. DOXYLAMINE [Concomitant]
     Active Substance: DOXYLAMINE
  3. AMLODIPINE [Suspect]
     Active Substance: AMLODIPINE BESYLATE
     Indication: HYPERTENSION
     Dates: start: 20210111, end: 20210331

REACTIONS (9)
  - Facial pain [None]
  - Ear congestion [None]
  - Nasal congestion [None]
  - Tinnitus [None]
  - Upper-airway cough syndrome [None]
  - Drug ineffective [None]
  - Headache [None]
  - Sinus pain [None]
  - Pain in jaw [None]

NARRATIVE: CASE EVENT DATE: 20210203
